FAERS Safety Report 5961508-0 (Version None)
Quarter: 2008Q4

REPORT INFORMATION
  Report Type: 
  Country: None (occurrence: None)
  Receive Date: 20081121
  Receipt Date: 20081111
  Transmission Date: 20090506
  Serious: Yes (Other)
  Sender: FDA-Public Use
  Company Number: JP-JNJFOC-20081103006

PATIENT

DRUGS (3)
  1. DOXIL [Suspect]
     Dosage: CYCLE 2
     Route: 042
  2. DOXIL [Suspect]
     Indication: KAPOSI'S SARCOMA
     Route: 042
  3. HAART [Suspect]
     Indication: KAPOSI'S SARCOMA
     Route: 065

REACTIONS (2)
  - BLOOD URIC ACID INCREASED [None]
  - NEUTROPENIA [None]
